FAERS Safety Report 7340645-2 (Version None)
Quarter: 2011Q1

REPORT INFORMATION
  Report Type: 
  Country: None (occurrence: None)
  Receive Date: 20110309
  Receipt Date: 20110304
  Transmission Date: 20110831
  Serious: Yes (Hospitalization)
  Sender: FDA-Public Use
  Company Number: DE-ROCHE-745627

PATIENT
  Sex: Female
  Weight: 69 kg

DRUGS (5)
  1. CARBOPLATIN [Suspect]
     Dosage: DOSAGE FORM: VIALS; DOSE LEVEL: 6 AUC; LAST DOSE PRIOR TO SAE: 22 NOV 2010
     Route: 042
     Dates: start: 20101011
  2. BEVACIZUMAB [Suspect]
     Dosage: DOSE FORM: VIALS; DOSE LEVEL: 15 MG/KG; LAST DOSE: 22 NOV 2010.  PERMANENTLY DISCONTINUED.
     Route: 042
     Dates: start: 20101011, end: 20101122
  3. TRASTUZUMAB [Suspect]
     Dosage: LOADING DOSE. DAY 1 OF CYCLE 1 ONLY PER PROTOCOL.
     Route: 042
     Dates: start: 20101011, end: 20101011
  4. DOCETAXEL [Suspect]
     Dosage: DOSE FORM: VIALS; DOSE LEVEL: 75 MG/M2; LAST DOSE PRIOR TO SAE: 22 NOV 2010
     Route: 042
     Dates: start: 20101011
  5. TRASTUZUMAB [Suspect]
     Dosage: MAINTENANCE DOSE. DOSE FORM: VIALS; DOSE LEVEL: 6 MG/KG; LAST DOSE PRIOR TO SAE: 22 NOV 2010
     Route: 042
     Dates: start: 20101101

REACTIONS (2)
  - OESOPHAGITIS [None]
  - GASTRIC ULCER [None]
